FAERS Safety Report 13044930 (Version 1)
Quarter: 2016Q4

REPORT INFORMATION
  Report Type: Report from Study
  Country: US (occurrence: US)
  Receive Date: 20161220
  Receipt Date: 20161220
  Transmission Date: 20170207
  Serious: Yes (Hospitalization, Other)
  Sender: FDA-Public Use
  Company Number: US-AMGEN-USASL2016178587

PATIENT
  Sex: Female

DRUGS (1)
  1. ENBREL [Suspect]
     Active Substance: ETANERCEPT
     Indication: RHEUMATOID ARTHRITIS
     Dosage: 50 MG, 1X WEEK
     Route: 065

REACTIONS (5)
  - Thrombosis [Unknown]
  - Pneumonia [Unknown]
  - Cardiac failure congestive [Unknown]
  - Chest pain [Unknown]
  - Abasia [Unknown]

NARRATIVE: CASE EVENT DATE: 2016
